FAERS Safety Report 4492441-1 (Version None)
Quarter: 2004Q4

REPORT INFORMATION
  Report Type: 
  Country: None (occurrence: None)
  Receive Date: 20041029
  Receipt Date: 20041021
  Transmission Date: 20050328
  Serious: Yes (Other)
  Sender: FDA-Public Use
  Company Number: US-JNJFOC-20041006791

PATIENT
  Age: 34 Year
  Sex: Male

DRUGS (3)
  1. PEPCID AC [Suspect]
     Indication: DYSPEPSIA
     Dosage: 10 MG, 1 IN 1 DAY, ORAL
     Route: 048
     Dates: start: 20041018
  2. TRILEPTAL [Concomitant]
  3. LEXAPRO [Concomitant]

REACTIONS (1)
  - CONVULSION [None]
